FAERS Safety Report 4410720-0 (Version None)
Quarter: 2004Q2

REPORT INFORMATION
  Report Type: 
  Country: None (occurrence: None)
  Receive Date: 20040630
  Receipt Date: 20040423
  Transmission Date: 20050107
  Serious: No
  Sender: FDA-Public Use
  Company Number: 04P-163-0258740-00

PATIENT
  Age: 51 Year
  Sex: Female
  Weight: 68.0396 kg

DRUGS (12)
  1. HUMIRA [Suspect]
     Indication: RHEUMATOID ARTHRITIS
     Dosage: 40 MG, 1 IN 2 WK, SUBCUTANEOUS
     Route: 058
     Dates: start: 20040220
  2. MULTI-VITAMINS [Concomitant]
  3. FISH OIL [Concomitant]
  4. CALCIUM [Concomitant]
  5. IBUPROFEN [Concomitant]
  6. METHOTREXATE [Concomitant]
  7. VICODIN [Concomitant]
  8. PREDNISONE [Concomitant]
  9. AMLODIPINE BESYLATE [Concomitant]
  10. LANSOPRAZOLE [Concomitant]
  11. FOLIC ACID [Concomitant]
  12. SERTRALINE HYDROCHLORIDE [Concomitant]

REACTIONS (4)
  - DRUG EFFECT DECREASED [None]
  - HERPES SIMPLEX [None]
  - INJECTION SITE ERYTHEMA [None]
  - RASH PAPULAR [None]
